FAERS Safety Report 8340441 (Version 2)
Quarter: 2012Q4

REPORT INFORMATION
  Report Type: 
  Country: US (occurrence: None)
  Receive Date: 20111209
  Receipt Date: 20120608
  Transmission Date: 20130627
  Serious: Yes (Hospitalization)
  Sender: FDA-Public Use
  Company Number: TH-2011-00385

PATIENT
  Age: 42 Year
  Sex: Male

DRUGS (10)
  1. EGRIFTA [Suspect]
     Indication: LIPODYSTROPHY ACQUIRED
     Dosage: 1 IN 1 D, SUBCUTANEOUS
     Route: 058
     Dates: start: 201108
  2. UNSPECIFIED HUMAN IMMUNODEFICIENCY VIRUS MEDICATIONS [Concomitant]
  3. TRUVADA (EMTRICITABINE) [Concomitant]
  4. REYATAZ (ATAZANAVIR SULFATE) [Concomitant]
  5. NORVIR (RITONAVIR) [Concomitant]
  6. ESZOPICLONE (ESZOPICLONE) [Concomitant]
  7. DULOXETINE (DULOXETINE) [Concomitant]
  8. CLONAZEPAM (CLONAZEPAM) [Concomitant]
  9. WELLBUTRIN SR (BUPROPION) [Concomitant]
  10. TESTOSTERONE CYPIONATE (TESTOSTERONE CIPIONATE) [Concomitant]

REACTIONS (3)
  - Gastric infection [None]
  - Gastroenteritis [None]
  - Dysentery [None]
